FAERS Safety Report 6715838-5 (Version None)
Quarter: 2010Q2

REPORT INFORMATION
  Report Type: 
  Country: None (occurrence: None)
  Receive Date: 20100507
  Receipt Date: 20100429
  Transmission Date: 20101027
  Serious: Yes (Other)
  Sender: FDA-Public Use
  Company Number: US-PFIZER INC-2010057336

PATIENT
  Sex: Male
  Weight: 76.644 kg

DRUGS (4)
  1. NICOTROL [Suspect]
     Indication: SMOKING CESSATION THERAPY
     Dosage: UNK
     Route: 055
     Dates: start: 20030101
  2. ADVAIR DISKUS 100/50 [Concomitant]
     Indication: EMPHYSEMA
     Dosage: UNIT DOSE: 500;
     Route: 055
  3. SPIRIVA [Concomitant]
     Indication: EMPHYSEMA
     Dosage: UNK
     Route: 055
  4. COMBIVENT [Concomitant]
     Indication: EMPHYSEMA
     Dosage: UNK

REACTIONS (2)
  - GLUCOSE TOLERANCE IMPAIRED [None]
  - MEDICATION ERROR [None]
